FAERS Safety Report 24081484 (Version 2)
Quarter: 2024Q3

REPORT INFORMATION
  Report Type: Spontaneous
  Country: CN (occurrence: CN)
  Receive Date: 20240712
  Receipt Date: 20240717
  Transmission Date: 20241016
  Serious: Yes (Hospitalization, Other)
  Sender: SANOFI AVENTIS
  Company Number: CN-SA-SAC20240705000492

PATIENT
  Age: 54 Year
  Sex: Female
  Weight: 50.5 kg

DRUGS (4)
  1. INSULIN GLARGINE [Suspect]
     Active Substance: INSULIN GLARGINE
     Indication: Diabetes mellitus
     Dosage: UNK
     Route: 058
     Dates: start: 20240208, end: 2024
  2. INSULIN GLARGINE [Suspect]
     Active Substance: INSULIN GLARGINE
     Dosage: 20 IU, QD
     Route: 058
     Dates: start: 2024, end: 20240612
  3. INSULIN ASPART [Suspect]
     Active Substance: INSULIN ASPART
     Indication: Diabetes mellitus
     Dosage: UNK
     Route: 058
     Dates: start: 20240209, end: 2024
  4. INSULIN ASPART [Suspect]
     Active Substance: INSULIN ASPART
     Dosage: 16 IU, TID
     Route: 058
     Dates: start: 2024, end: 20240612

REACTIONS (7)
  - Pancreatic failure [Recovering/Resolving]
  - Diabetes mellitus [Unknown]
  - Hypoglycaemic coma [Recovering/Resolving]
  - Altered state of consciousness [Recovered/Resolved]
  - Foaming at mouth [Recovering/Resolving]
  - Blood glucose fluctuation [Recovering/Resolving]
  - Hypoglycaemia [Recovering/Resolving]

NARRATIVE: CASE EVENT DATE: 20240101
